FAERS Safety Report 7383833-1 (Version None)
Quarter: 2011Q1

REPORT INFORMATION
  Report Type: 
  Country: None (occurrence: None)
  Receive Date: 20110322
  Receipt Date: 20110307
  Transmission Date: 20110831
  Serious: Yes (Hospitalization)
  Sender: FDA-Public Use
  Company Number: CIO11004395

PATIENT
  Sex: Female

DRUGS (1)
  1. VAPOSTEAM [Suspect]
     Dosage: ORAL
     Route: 048

REACTIONS (9)
  - ACCIDENTAL EXPOSURE [None]
  - INCORRECT ROUTE OF DRUG ADMINISTRATION [None]
  - OXYGEN SATURATION DECREASED [None]
  - ASTHENIA [None]
  - HYPOXIA [None]
  - MALAISE [None]
  - WRONG DRUG ADMINISTERED [None]
  - HYPOTENSION [None]
  - ASPIRATION [None]
